FAERS Safety Report 9137368 (Version 2)
Quarter: 2013Q2

REPORT INFORMATION
  Report Type: Spontaneous
  Country: MX (occurrence: MX)
  Receive Date: 20130304
  Receipt Date: 20130626
  Transmission Date: 20140414
  Serious: Yes (Other)
  Sender: FDA-Public Use
  Company Number: MX-BRISTOL-MYERS SQUIBB COMPANY-17409244

PATIENT
  Age: 93 Year
  Sex: Female

DRUGS (18)
  1. APROVEL TABS 150 MG [Suspect]
     Indication: HYPERTENSION
     Dosage: 1DF = 1/2 TANS FOE 24HR, PNR FROM 2005?200MG
     Route: 048
  2. CLOPIDOGREL + ACETYLSALICYLIC ACID [Suspect]
     Indication: THROMBOSIS PROPHYLAXIS
     Dosage: LAST DOSE: FEB2013
     Route: 048
     Dates: start: 2012
  3. PLAVIX [Concomitant]
     Indication: THROMBOSIS PROPHYLAXIS
     Route: 048
     Dates: start: 2012
  4. AKATINOL [Concomitant]
     Indication: DEMENTIA
     Route: 048
  5. KETOROLAC TROMETHAMINE [Concomitant]
     Indication: GLAUCOMA
     Route: 047
  6. BRIMONIDINE TARTRATE + TIMOLOL MALEATE [Concomitant]
     Indication: GLAUCOMA
     Route: 047
  7. AMIODARONE [Concomitant]
     Indication: ANGINA PECTORIS
     Dosage: 1DF = 1/2TAB
     Route: 048
     Dates: start: 2005
  8. AMIODARONE [Concomitant]
     Indication: ARRHYTHMIA
     Dosage: 1DF = 1/2TAB
     Route: 048
     Dates: start: 2005
  9. ALDACTONE [Concomitant]
     Indication: ANGINA PECTORIS
     Route: 048
     Dates: start: 2005
  10. ALDACTONE [Concomitant]
     Indication: ARRHYTHMIA
     Route: 048
     Dates: start: 2005
  11. MEXILETINE HCL [Concomitant]
     Indication: ANGINA PECTORIS
     Route: 048
     Dates: start: 2005
  12. MEXILETINE HCL [Concomitant]
     Indication: ARRHYTHMIA
     Route: 048
     Dates: start: 2005
  13. DIGOXIN [Concomitant]
     Indication: ARRHYTHMIA
     Route: 048
     Dates: start: 2005
  14. DIGOXIN [Concomitant]
     Indication: ANGINA PECTORIS
     Route: 048
     Dates: start: 2005
  15. ASPIRINA [Concomitant]
     Indication: THROMBOSIS PROPHYLAXIS
     Dosage: 3TIMES A WEEK
     Route: 048
     Dates: start: 2005
  16. EUTIROX [Concomitant]
     Indication: HYPOTHYROIDISM
     Dosage: 1DF= 1/2 TAB, 1TBS, 2TAB?OCT12-OCT12?OCT12-DEC12?DEC12-ONG
     Route: 048
     Dates: start: 201210
  17. SODIUM CHLORIDE [Concomitant]
  18. DORZOLAMIDE HCL + TIMOLOL MALEATE [Concomitant]

REACTIONS (6)
  - Cyst [Recovered/Resolved]
  - Hypothyroidism [Not Recovered/Not Resolved]
  - Macule [Recovering/Resolving]
  - Laceration [Recovered/Resolved]
  - Hyponatraemia [Not Recovered/Not Resolved]
  - Hypochloraemia [Not Recovered/Not Resolved]
